FAERS Safety Report 21501882 (Version 1)
Quarter: 2022Q4

REPORT INFORMATION
  Report Type: Report from Study
  Country: US (occurrence: US)
  Receive Date: 20221025
  Receipt Date: 20221025
  Transmission Date: 20230112
  Serious: Yes (Hospitalization, Other)
  Sender: FDA-Public Use
  Company Number: US-KADMON CORPORATION, LLC-US-KAD-22-00600

PATIENT
  Age: 63 Year
  Sex: Female

DRUGS (2)
  1. BELUMOSUDIL [Suspect]
     Active Substance: BELUMOSUDIL
     Indication: Graft versus host disease
     Dosage: 200 MILLIGRAM, QD
     Route: 065
     Dates: start: 20211105
  2. BELUMOSUDIL [Suspect]
     Active Substance: BELUMOSUDIL
     Dosage: 200 MILLIGRAM, QD
     Route: 065
     Dates: start: 202208

REACTIONS (2)
  - Pneumonia bacterial [Unknown]
  - Nosocomial infection [Unknown]

NARRATIVE: CASE EVENT DATE: 20220601
